FAERS Safety Report 12535170 (Version 1)
Quarter: 2016Q3

REPORT INFORMATION
  Report Type: Spontaneous
  Country: US (occurrence: None)
  Receive Date: 20160706
  Receipt Date: 20160706
  Transmission Date: 20161109
  Serious: No
  Sender: FDA-Public Use
  Company Number: None

PATIENT
  Age: 62 Year
  Sex: Female

DRUGS (1)
  1. FORTEO [Suspect]
     Active Substance: TERIPARATIDE
     Route: 058
     Dates: start: 20160405

REACTIONS (4)
  - Arthralgia [None]
  - Ear pain [None]
  - Headache [None]
  - Bone pain [None]

NARRATIVE: CASE EVENT DATE: 20160501
